FAERS Safety Report 7303520-5 (Version None)
Quarter: 2011Q1

REPORT INFORMATION
  Report Type: 
  Country: None (occurrence: None)
  Receive Date: 20110221
  Receipt Date: 20110216
  Transmission Date: 20110831
  Serious: Yes (Life-Threatening, Hospitalization, Other)
  Sender: FDA-Public Use
  Company Number: PHHY2010AU24532

PATIENT
  Sex: Female
  Weight: 67 kg

DRUGS (13)
  1. MURELAX [Concomitant]
     Dosage: 30 MG ONE NOCTE
     Dates: start: 20100416
  2. TEMAZEPAM [Concomitant]
     Dosage: 10 MG ONE NOCTE
     Dates: start: 20100201
  3. EZETROL [Concomitant]
     Dosage: 10 MG ONE NOCTE TO LOWER CHOLESTROL
     Dates: start: 20100201
  4. OXAZEPAM [Concomitant]
  5. ACLASTA [Suspect]
     Indication: OSTEOPOROSIS
     Dosage: 5 MG/100 ML
     Route: 042
     Dates: start: 20100323
  6. PROTHIADEN [Concomitant]
     Dosage: 75 MG ONE NOCTE AT BEDTIME
     Dates: start: 20100416
  7. RANITIDINE HYDROCHLORIDE [Concomitant]
     Indication: DYSPEPSIA
     Dosage: 150 MG ONE B.D. FOR DYSPEPTIC SYMPTOMS
     Dates: start: 20100421
  8. VAGIFEM [Concomitant]
     Dosage: 25 MCG INSERT WEEKLY VAGINALLY
     Route: 067
     Dates: start: 20090730
  9. NEXIUM [Concomitant]
     Dosage: UNK
  10. ASPIRIN [Concomitant]
     Dosage: 100 MG ONE MANE TWICE A WEEK
     Dates: start: 20100201
  11. CRESTOR [Concomitant]
     Dosage: 40 MG ONE NOCTE TO LOWER CHOLESTROL
     Dates: start: 20100322
  12. PANAMAX [Concomitant]
     Indication: OSTEOARTHRITIS
     Dosage: TWO T.I.D FOR PAIN RELIEF FROM CHRONIC OSTEOARTHRITIS
     Dates: start: 20080820
  13. SENOKOT                                 /UNK/ [Concomitant]
     Indication: CONSTIPATION
     Dosage: 7.5 MG FOUR NOCTE FOR CONSTIPATION
     Dates: start: 20100420

REACTIONS (19)
  - PANCREATITIS ACUTE [None]
  - PNEUMONIA [None]
  - LEFT VENTRICULAR HYPERTROPHY [None]
  - LETHARGY [None]
  - AORTIC ARTERIOSCLEROSIS [None]
  - RENAL TUBULAR NECROSIS [None]
  - FEELING ABNORMAL [None]
  - MITRAL VALVE INCOMPETENCE [None]
  - RENAL FAILURE [None]
  - TROPONIN T INCREASED [None]
  - VOMITING [None]
  - C-REACTIVE PROTEIN INCREASED [None]
  - GLOMERULAR FILTRATION RATE DECREASED [None]
  - NEPHROPATHY [None]
  - TRICUSPID VALVE INCOMPETENCE [None]
  - DEHYDRATION [None]
  - LIPASE INCREASED [None]
  - PYELOCALIECTASIS [None]
  - URINARY TRACT INFECTION [None]
